FAERS Safety Report 5018677-9 (Version None)
Quarter: 2006Q2

REPORT INFORMATION
  Report Type: 
  Country: None (occurrence: None)
  Receive Date: 20060530
  Receipt Date: 20060517
  Transmission Date: 20061013
  Serious: Yes (Death)
  Sender: FDA-Public Use
  Company Number: PERC20060021

PATIENT
  Age: 40 Year
  Sex: Male
  Weight: 106.5953 kg

DRUGS (6)
  1. ENDOCET [Suspect]
     Indication: PAIN
     Dosage: PO
     Route: 048
     Dates: end: 20051101
  2. DURAGESIC PATCH  J+J [Suspect]
     Indication: PAIN
     Dosage: OTHR
     Dates: end: 20051101
  3. HYDROCODONE [Suspect]
     Indication: PAIN
     Dates: end: 20051101
  4. XANAX [Suspect]
     Dosage: 1MG PFIZER
     Dates: end: 20051101
  5. CANNABIS [Suspect]
     Dates: end: 20051101
  6. TOPAMAX [Suspect]
     Indication: NEURALGIA
     Dosage: 50 MG J+J  2 TABS DAILY PO
     Route: 048
     Dates: start: 20041029, end: 20051101

REACTIONS (3)
  - BRONCHOPNEUMONIA [None]
  - DRUG INTERACTION [None]
  - MULTIPLE DRUG OVERDOSE [None]
